FAERS Safety Report 17229469 (Version 1)
Quarter: 2020Q1

REPORT INFORMATION
  Report Type: Spontaneous
  Country: US (occurrence: US)
  Receive Date: 20200103
  Receipt Date: 20200103
  Transmission Date: 20200409
  Serious: No
  Sender: FDA-Public Use
  Company Number: US-SHIRE-US201945641

PATIENT
  Sex: Male

DRUGS (4)
  1. GAMMAGARD LIQUID [Suspect]
     Active Substance: HUMAN IMMUNOGLOBULIN G
     Indication: MARGINAL ZONE LYMPHOMA
  2. RITUXIMAB. [Concomitant]
     Active Substance: RITUXIMAB
     Indication: PRODUCT USED FOR UNKNOWN INDICATION
  3. GAMMAGARD LIQUID [Suspect]
     Active Substance: HUMAN IMMUNOGLOBULIN G
     Indication: B-CELL LYMPHOMA
     Route: 051
  4. NIFEDIPINE (II) [Concomitant]
     Indication: BLOOD PRESSURE MEASUREMENT
     Route: 065

REACTIONS (7)
  - Intentional product use issue [Unknown]
  - Inappropriate schedule of product administration [Unknown]
  - Red blood cell count decreased [Recovering/Resolving]
  - Feeling abnormal [Unknown]
  - Product availability issue [Unknown]
  - Haematocrit decreased [Recovering/Resolving]
  - Renal disorder [Recovering/Resolving]
